FAERS Safety Report 15004954 (Version 1)
Quarter: 2018Q2

REPORT INFORMATION
  Report Type: Spontaneous
  Country: US (occurrence: US)
  Receive Date: 20180613
  Receipt Date: 20180613
  Transmission Date: 20180711
  Serious: No
  Sender: FDA-Public Use
  Company Number: US-COVIS PHARMA B.V.-2018COV00078

PATIENT
  Sex: Female

DRUGS (11)
  1. TOPROL XL [Suspect]
     Active Substance: METOPROLOL SUCCINATE
     Dosage: 100 MG, UNK
     Route: 048
  2. TRIAMTERENE. [Concomitant]
     Active Substance: TRIAMTERENE
  3. MIRTAZAPINE. [Concomitant]
     Active Substance: MIRTAZAPINE
     Dosage: 30 MG, UNK
  4. CLOPIDOGREL [Concomitant]
     Active Substance: CLOPIDOGREL BISULFATE
     Dosage: 75 MG, UNK
  5. LISINOPRIL. [Suspect]
     Active Substance: LISINOPRIL
     Dosage: 40 MG, UNK
     Route: 048
  6. GLIPIZIDE. [Concomitant]
     Active Substance: GLIPIZIDE
     Dosage: 10 MG, UNK
  7. TEMAZEPAM. [Concomitant]
     Active Substance: TEMAZEPAM
  8. POTASSIUM [Concomitant]
     Active Substance: POTASSIUM
     Dosage: 10 MG, UNK
  9. BRILINTA [Suspect]
     Active Substance: TICAGRELOR
     Indication: STENT PLACEMENT
     Dosage: 90 MG, 2X/DAY
     Route: 048
     Dates: start: 20171213
  10. METFORMIN [Concomitant]
     Active Substance: METFORMIN HYDROCHLORIDE
     Dosage: 1000 MG, UNK
  11. OMEPRAZOLE MAGNESIUM. [Suspect]
     Active Substance: OMEPRAZOLE MAGNESIUM
     Dosage: 20 MG, UNK
     Route: 048

REACTIONS (1)
  - Rash [Unknown]
